FAERS Safety Report 5449698-X (Version None)
Quarter: 2007Q3

REPORT INFORMATION
  Report Type: 
  Country: None (occurrence: None)
  Receive Date: 20070910
  Receipt Date: 20070910
  Transmission Date: 20080115
  Serious: Yes (Other)
  Sender: FDA-Public Use
  Company Number: None

PATIENT
  Age: 42 Year
  Sex: Female
  Weight: 71.6683 kg

DRUGS (3)
  1. METOPROLOL SUCCINATE EXTENDED RELEASE [Suspect]
     Indication: CARDIOMYOPATHY
     Dosage: 150 MG DAILY PO
     Route: 048
     Dates: start: 20070822, end: 20070829
  2. METOPROLOL SUCCINATE EXTENDED RELEASE [Suspect]
     Indication: HYPERTENSION
     Dosage: 150 MG DAILY PO
     Route: 048
     Dates: start: 20070822, end: 20070829
  3. METOPROLOL SUCCINATE EXTENDED RELEASE [Suspect]
     Indication: VENTRICULAR HYPERTROPHY
     Dosage: 150 MG DAILY PO
     Route: 048
     Dates: start: 20070822, end: 20070829

REACTIONS (11)
  - BRADYCARDIA [None]
  - CHEST DISCOMFORT [None]
  - CHEST PAIN [None]
  - CONFUSIONAL STATE [None]
  - DIZZINESS [None]
  - DYSPNOEA [None]
  - HYPERHIDROSIS [None]
  - NAUSEA [None]
  - PAIN IN EXTREMITY [None]
  - PARAESTHESIA [None]
  - PHARMACEUTICAL PRODUCT COMPLAINT [None]
